FAERS Safety Report 5156875-4 (Version None)
Quarter: 2006Q4

REPORT INFORMATION
  Report Type: 
  Country: None (occurrence: None)
  Receive Date: 20061115
  Receipt Date: 20061103
  Transmission Date: 20070319
  Serious: Yes (Other)
  Sender: FDA-Public Use
  Company Number: GBWYE194611OCT06

PATIENT
  Age: 55 Year
  Sex: Male

DRUGS (5)
  1. EFFEXOR XR [Suspect]
     Indication: DEPRESSION
     Dosage: 225 MG 1X PER 1 DAY ORAL
     Route: 048
  2. LITHIUM CARBONATE [Concomitant]
  3. VITAMIN B-COMPLEX (VITAMIN B-COMPLEX) [Concomitant]
  4. THIAMINE (THIAMINE) [Concomitant]
  5. ZOPICLONE (ZOPICLONE) [Concomitant]

REACTIONS (6)
  - DEPRESSED LEVEL OF CONSCIOUSNESS [None]
  - DRUG DOSE OMISSION [None]
  - DRUG WITHDRAWAL SYNDROME [None]
  - IMPAIRED DRIVING ABILITY [None]
  - MEMORY IMPAIRMENT [None]
  - PARAESTHESIA [None]
